FAERS Safety Report 25633549 (Version 2)
Quarter: 2025Q4

REPORT INFORMATION
  Report Type: Report from Study
  Country: US (occurrence: US)
  Receive Date: 20250801
  Receipt Date: 20251013
  Transmission Date: 20260117
  Serious: Yes (Hospitalization, Other)
  Sender: ABBVIE
  Company Number: US-ABBVIE-6234699

PATIENT
  Age: 59 Year
  Sex: Female

DRUGS (2)
  1. SKYRIZI [Suspect]
     Active Substance: RISANKIZUMAB-RZAA
     Indication: Psoriatic arthropathy
     Dosage: LAST ADMIN DATE - 2025
     Route: 058
     Dates: start: 20250314
  2. SKYRIZI [Suspect]
     Active Substance: RISANKIZUMAB-RZAA
     Route: 058
     Dates: start: 20250411

REACTIONS (11)
  - Urinary tract infection [Recovering/Resolving]
  - Oropharyngeal pain [Recovering/Resolving]
  - Thyroid cancer [Unknown]
  - Arthralgia [Not Recovered/Not Resolved]
  - Inflammation [Recovering/Resolving]
  - Fatigue [Unknown]
  - Musculoskeletal stiffness [Not Recovered/Not Resolved]
  - Immunosuppression [Unknown]
  - Kidney infection [Unknown]
  - Nervousness [Unknown]
  - Arthralgia [Not Recovered/Not Resolved]

NARRATIVE: CASE EVENT DATE: 20250101
